FAERS Safety Report 6685956-9 (Version None)
Quarter: 2010Q2

REPORT INFORMATION
  Report Type: 
  Country: None (occurrence: None)
  Receive Date: 20100419
  Receipt Date: 20100412
  Transmission Date: 20101027
  Serious: Yes (Other)
  Sender: FDA-Public Use
  Company Number: US-BRACCO-004184

PATIENT
  Sex: Female

DRUGS (53)
  1. MAGNEVIST [Suspect]
     Indication: NUCLEAR MAGNETIC RESONANCE IMAGING
     Route: 065
     Dates: start: 20061020, end: 20061020
  2. MAGNEVIST [Suspect]
     Indication: NUCLEAR MAGNETIC RESONANCE IMAGING BRAIN
     Route: 065
     Dates: start: 20070114, end: 20070114
  3. MAGNEVIST [Suspect]
     Route: 065
     Dates: start: 20071013, end: 20071013
  4. MAGNEVIST [Suspect]
     Route: 065
     Dates: start: 20060809, end: 20060809
  5. MAGNEVIST [Suspect]
     Route: 065
     Dates: start: 20060802, end: 20060802
  6. MAGNEVIST [Suspect]
     Route: 065
     Dates: start: 20061230, end: 20061230
  7. MAGNEVIST [Suspect]
     Route: 065
     Dates: start: 20080601, end: 20080601
  8. MAGNEVIST [Suspect]
     Route: 065
     Dates: start: 20071113, end: 20071113
  9. PROHANCE [Suspect]
     Indication: NUCLEAR MAGNETIC RESONANCE IMAGING BRAIN
     Route: 065
     Dates: start: 20040506, end: 20040506
  10. OMNISCAN [Suspect]
     Indication: NUCLEAR MAGNETIC RESONANCE IMAGING BRAIN
     Route: 065
     Dates: start: 20060116, end: 20060116
  11. FLOVENT [Concomitant]
  12. SYNTHROID [Concomitant]
  13. COMBIVENT [Concomitant]
  14. HYZAAR [Concomitant]
  15. METFORMIN HCL [Concomitant]
  16. SINGULAIR [Concomitant]
  17. PREDNISONE [Concomitant]
  18. CONTRAST MEDIA [Suspect]
     Indication: DIAGNOSTIC PROCEDURE
     Route: 065
     Dates: start: 20080601, end: 20080601
  19. CONTRAST MEDIA [Suspect]
     Route: 065
     Dates: start: 20080815, end: 20080815
  20. CONTRAST MEDIA [Suspect]
     Route: 065
     Dates: start: 20061020, end: 20061020
  21. CONTRAST MEDIA [Suspect]
     Route: 065
     Dates: start: 20061228, end: 20061228
  22. CONTRAST MEDIA [Suspect]
     Route: 065
     Dates: start: 20041220, end: 20041220
  23. CONTRAST MEDIA [Suspect]
     Route: 065
     Dates: start: 20061229, end: 20061229
  24. CONTRAST MEDIA [Suspect]
     Route: 065
     Dates: start: 20070102, end: 20070102
  25. CONTRAST MEDIA [Suspect]
     Route: 065
     Dates: start: 20071219, end: 20071219
  26. CONTRAST MEDIA [Suspect]
     Route: 065
     Dates: start: 20090520, end: 20090520
  27. CONTRAST MEDIA [Suspect]
     Route: 065
     Dates: start: 20060521, end: 20060521
  28. CONTRAST MEDIA [Suspect]
     Route: 065
     Dates: start: 20080427, end: 20080427
  29. CONTRAST MEDIA [Suspect]
     Route: 065
     Dates: start: 20060216, end: 20060216
  30. CONTRAST MEDIA [Suspect]
     Route: 065
     Dates: start: 20071004, end: 20071004
  31. CONTRAST MEDIA [Suspect]
     Route: 065
     Dates: start: 20071025, end: 20071025
  32. CONTRAST MEDIA [Suspect]
     Route: 065
     Dates: start: 20080516, end: 20080516
  33. CONTRAST MEDIA [Suspect]
     Route: 065
     Dates: start: 20080530, end: 20080530
  34. CONTRAST MEDIA [Suspect]
     Route: 065
     Dates: start: 20080710, end: 20080710
  35. CONTRAST MEDIA [Suspect]
     Route: 065
     Dates: start: 20081017, end: 20081017
  36. CONTRAST MEDIA [Suspect]
     Route: 065
     Dates: start: 20081121, end: 20081121
  37. CONTRAST MEDIA [Suspect]
     Route: 065
     Dates: start: 20050218, end: 20050218
  38. CONTRAST MEDIA [Suspect]
     Route: 065
     Dates: start: 20050530, end: 20050530
  39. CONTRAST MEDIA [Suspect]
     Route: 065
     Dates: start: 20050608, end: 20050608
  40. CONTRAST MEDIA [Suspect]
     Route: 065
     Dates: start: 20050629, end: 20050629
  41. CONTRAST MEDIA [Suspect]
     Route: 065
     Dates: start: 20060217, end: 20060217
  42. CONTRAST MEDIA [Suspect]
     Route: 065
     Dates: start: 20060330, end: 20060330
  43. CONTRAST MEDIA [Suspect]
     Route: 065
     Dates: start: 20060712, end: 20060712
  44. CONTRAST MEDIA [Suspect]
     Route: 065
     Dates: start: 20070114, end: 20070114
  45. CONTRAST MEDIA [Suspect]
     Route: 065
     Dates: start: 20090522, end: 20090522
  46. LOVENOX [Concomitant]
  47. NEURONTIN [Concomitant]
  48. LIPITOR [Concomitant]
  49. PROVENTIL [Concomitant]
  50. CRESTOR [Concomitant]
  51. ATENOLOL [Concomitant]
  52. FRAGMIN [Concomitant]
  53. OPTIMARK [Suspect]
     Indication: NUCLEAR MAGNETIC RESONANCE IMAGING BRAIN
     Dates: start: 20040506, end: 20040506

REACTIONS (1)
  - NEPHROGENIC SYSTEMIC FIBROSIS [None]
